FAERS Safety Report 5367966-7 (Version None)
Quarter: 2007Q2

REPORT INFORMATION
  Report Type: 
  Country: None (occurrence: None)
  Receive Date: 20070622
  Receipt Date: 20070615
  Transmission Date: 20071010
  Serious: Yes (Death, Hospitalization)
  Sender: FDA-Public Use
  Company Number: FR-ABBOTT-07P-056-0371615-00

PATIENT
  Age: 69 Year
  Sex: Male

DRUGS (5)
  1. DEPAKOTE [Suspect]
     Indication: DRUG USE FOR UNKNOWN INDICATION
     Route: 048
  2. CYAMEMAZINE [Suspect]
     Indication: MANIA
     Route: 048
  3. CYAMEMAZINE [Suspect]
     Route: 048
     Dates: start: 20070201, end: 20070201
  4. CYAMEMAZINE [Suspect]
     Route: 048
     Dates: start: 20070301
  5. LOXAPINE [Suspect]
     Indication: DRUG USE FOR UNKNOWN INDICATION
     Route: 048

REACTIONS (7)
  - HYPERTHERMIA [None]
  - MANIA [None]
  - PNEUMONIA ASPIRATION [None]
  - PULMONARY CONGESTION [None]
  - RESPIRATORY DISTRESS [None]
  - RESPIRATORY TRACT CONGESTION [None]
  - SOMNOLENCE [None]
